FAERS Safety Report 4305855-7 (Version None)
Quarter: 2004Q1

REPORT INFORMATION
  Report Type: 
  Country: None (occurrence: None)
  Receive Date: 20040226
  Receipt Date: 20040217
  Transmission Date: 20041129
  Serious: Yes (Hospitalization)
  Sender: FDA-Public Use
  Company Number: M2004.0059

PATIENT
  Age: 77 Year
  Sex: Female
  Weight: 68.0396 kg

DRUGS (4)
  1. AMANTADINE, MANUFACTURER UNK. [Suspect]
     Indication: INFLUENZA IMMUNISATION
     Dosage: 100 MG + 50 MG QD
     Dates: start: 20040101, end: 20040114
  2. SEROQUEL [Concomitant]
  3. PROPRANOLOL [Concomitant]
  4. ARICEPT [Concomitant]

REACTIONS (1)
  - MANIA [None]
